FAERS Safety Report 7069479-3 (Version None)
Quarter: 2010Q4

REPORT INFORMATION
  Report Type: 
  Country: None (occurrence: None)
  Receive Date: 20101028
  Receipt Date: 20100104
  Transmission Date: 20110411
  Serious: No
  Sender: FDA-Public Use
  Company Number: US-WYE-H12885510

PATIENT

DRUGS (1)
  1. EFFEXOR [Suspect]
     Dosage: TITRATED UP TO 300 MG

REACTIONS (2)
  - DRUG WITHDRAWAL SYNDROME [None]
  - HYPERTENSION [None]
